FAERS Safety Report 10516780 (Version 1)
Quarter: 2014Q4

REPORT INFORMATION
  Report Type: Spontaneous
  Country: US (occurrence: US)
  Receive Date: 20141014
  Receipt Date: 20141014
  Transmission Date: 20150528
  Serious: Yes (Hospitalization)
  Sender: FDA-Public Use
  Company Number: US-SA-2014SA138732

PATIENT
  Age: 84 Year
  Sex: Female

DRUGS (3)
  1. ORAL ANTIDIABETICS [Concomitant]
     Active Substance: UNSPECIFIED INGREDIENT
  2. LASIX [Suspect]
     Active Substance: FUROSEMIDE
     Route: 065
  3. LASIX [Suspect]
     Active Substance: FUROSEMIDE
     Route: 065

REACTIONS (3)
  - Feeling abnormal [Unknown]
  - Micturition urgency [Unknown]
  - Hospitalisation [Unknown]
